FAERS Safety Report 14595459 (Version 1)
Quarter: 2018Q1

REPORT INFORMATION
  Report Type: Spontaneous
  Country: IT (occurrence: IT)
  Receive Date: 20180302
  Receipt Date: 20180302
  Transmission Date: 20180509
  Serious: Yes (Other)
  Sender: FDA-Public Use
  Company Number: IT-009507513-1802ITA012715

PATIENT
  Age: 50 Year
  Sex: Male

DRUGS (2)
  1. RIBAVIRIN. [Suspect]
     Active Substance: RIBAVIRIN
     Indication: CHRONIC HEPATITIS C
     Dosage: 1200 MG, FREQUENCY UNK
     Route: 065
  2. SOFOSBUVIR (+) VELPATASVIR [Suspect]
     Active Substance: SOFOSBUVIR\VELPATASVIR
     Indication: CHRONIC HEPATITIS C
     Dosage: 1 DF, FREQUENCY UNK
     Route: 065

REACTIONS (4)
  - Hepatocellular carcinoma [Unknown]
  - Genotype drug resistance test positive [Unknown]
  - Hepatitis C [Unknown]
  - Drug ineffective [Unknown]
